FAERS Safety Report 8747097 (Version 2)
Quarter: 2012Q4

REPORT INFORMATION
  Report Type: 
  Country: BR (occurrence: BR)
  Receive Date: 20120827
  Receipt Date: 20120927
  Transmission Date: 20130627
  Serious: Yes (Other)
  Sender: FDA-Public Use
  Company Number: BR-JNJFOC-20120810633

PATIENT
  Sex: Female
  Weight: 50 kg

DRUGS (8)
  1. REMICADE [Suspect]
     Indication: PROCTOCOLITIS
     Route: 042
     Dates: start: 20120717
  2. REMICADE [Suspect]
     Indication: PROCTOCOLITIS
     Route: 042
     Dates: start: 20120830
  3. REMICADE [Suspect]
     Indication: PROCTOCOLITIS
     Route: 042
     Dates: start: 201206
  4. REMICADE [Suspect]
     Indication: COLITIS ULCERATIVE
     Route: 042
     Dates: start: 20120830
  5. REMICADE [Suspect]
     Indication: COLITIS ULCERATIVE
     Route: 042
     Dates: start: 20120717
  6. REMICADE [Suspect]
     Indication: COLITIS ULCERATIVE
     Route: 042
     Dates: start: 201206
  7. IMURAN [Concomitant]
     Indication: PROCTOCOLITIS
     Route: 065
     Dates: start: 201207
  8. PARIET [Concomitant]
     Route: 048
     Dates: start: 201208

REACTIONS (1)
  - Colitis ulcerative [Recovered/Resolved]
